APPROVED DRUG PRODUCT: ANGIOVIST 292
Active Ingredient: DIATRIZOATE MEGLUMINE; DIATRIZOATE SODIUM
Strength: 52%;8%
Dosage Form/Route: INJECTABLE;INJECTION
Application: A087724 | Product #001
Applicant: BAYER HEALTHCARE PHARMACEUTICALS INC
Approved: Sep 23, 1982 | RLD: No | RS: No | Type: DISCN